FAERS Safety Report 8017256-9 (Version None)
Quarter: 2012Q1

REPORT INFORMATION
  Report Type: 
  Country: None (occurrence: None)
  Receive Date: 20120102
  Receipt Date: 20111221
  Transmission Date: 20120608
  Serious: Yes (Hospitalization)
  Sender: FDA-Public Use
  Company Number: PHHY2011DK112876

PATIENT
  Age: 43 Year
  Sex: Female

DRUGS (2)
  1. GLEEVEC [Suspect]
     Indication: NEPHROGENIC SYSTEMIC FIBROSIS
     Dosage: 400 MG, QD
     Route: 048
  2. GLEEVEC [Suspect]
     Dosage: 200 MG, DAILY
     Route: 048

REACTIONS (2)
  - CLOSTRIDIUM DIFFICILE COLITIS [None]
  - URTICARIA [None]
